FAERS Safety Report 23779745 (Version 1)
Quarter: 2024Q2

REPORT INFORMATION
  Report Type: Spontaneous
  Country: RU (occurrence: RU)
  Receive Date: 20240424
  Receipt Date: 20240424
  Transmission Date: 20240716
  Serious: Yes (Other)
  Sender: FDA-Public Use
  Company Number: RU-Eisai-EC-2024-164037

PATIENT
  Age: 52 Year
  Sex: Male

DRUGS (5)
  1. LENVATINIB [Suspect]
     Active Substance: LENVATINIB
     Indication: Renal cell carcinoma
     Route: 048
     Dates: start: 202309, end: 202311
  2. LENVATINIB [Suspect]
     Active Substance: LENVATINIB
     Route: 048
     Dates: start: 20240131, end: 202402
  3. LENVATINIB [Suspect]
     Active Substance: LENVATINIB
     Route: 048
     Dates: start: 202402
  4. PEMBROLIZUMAB [Concomitant]
     Active Substance: PEMBROLIZUMAB
     Indication: Renal cell carcinoma
     Route: 041
     Dates: start: 202309, end: 202311
  5. PEMBROLIZUMAB [Concomitant]
     Active Substance: PEMBROLIZUMAB
     Route: 041
     Dates: start: 20240131

REACTIONS (4)
  - Muscular weakness [Recovered/Resolved]
  - Dysphagia [Recovering/Resolving]
  - Hypotension [Recovering/Resolving]
  - Hepatitis [Recovered/Resolved]

NARRATIVE: CASE EVENT DATE: 20231101
